FAERS Safety Report 6600565-5 (Version None)
Quarter: 2010Q1

REPORT INFORMATION
  Report Type: 
  Country: None (occurrence: None)
  Receive Date: 20100224
  Receipt Date: 20100217
  Transmission Date: 20100710
  Serious: Yes (Other)
  Sender: FDA-Public Use
  Company Number: US-ABBOTT-10P-163-0627867-00

PATIENT
  Sex: Female
  Weight: 54.48 kg

DRUGS (3)
  1. HUMIRA [Suspect]
     Indication: PSORIASIS
     Route: 058
     Dates: start: 20080101, end: 20100212
  2. HUMIRA [Suspect]
     Route: 058
     Dates: start: 20100212, end: 20100218
  3. CLINDAMYCIN [Suspect]
     Indication: DRUG USE FOR UNKNOWN INDICATION
     Route: 048
     Dates: start: 20091220, end: 20100101

REACTIONS (11)
  - APHONIA [None]
  - DYSPHAGIA [None]
  - OROPHARYNGEAL PAIN [None]
  - PERITONSILLAR ABSCESS [None]
  - PHARYNGEAL OEDEMA [None]
  - PRURITUS [None]
  - PSORIASIS [None]
  - SKIN BURNING SENSATION [None]
  - SKIN EXFOLIATION [None]
  - TONSILLITIS [None]
  - URTICARIA [None]
